FAERS Safety Report 10015544 (Version 4)
Quarter: 2014Q1

REPORT INFORMATION
  Report Type: Spontaneous
  Country: IT (occurrence: IT)
  Receive Date: 20140317
  Receipt Date: 20140324
  Transmission Date: 20141002
  Serious: Yes (Hospitalization)
  Sender: FDA-Public Use
  Company Number: IT-TEVA-466967ISR

PATIENT
  Age: 85 Year
  Sex: Male

DRUGS (5)
  1. ALPRAZOLAM [Suspect]
     Indication: SEDATION
     Dosage: 40 GTT DAILY;
     Route: 048
     Dates: start: 20140205, end: 20140205
  2. GABAPENTIN [Suspect]
     Indication: SEDATION
     Dosage: 200 MILLIGRAM DAILY;
     Route: 048
     Dates: start: 20140205, end: 20140205
  3. SEROQUEL - 25 MG COMPRESSE RIVESTITE CON FILM [Suspect]
     Indication: SEDATION
     Dosage: 25 MILLIGRAM DAILY;
     Route: 048
     Dates: start: 20140204, end: 20140205
  4. LOBIVON - COMPRESSE [Concomitant]
     Indication: PRODUCT USED FOR UNKNOWN INDICATION
  5. MADOPAR - 100 MG + 25 MG CAPSULE RIGIDE [Concomitant]
     Indication: PARKINSONISM

REACTIONS (4)
  - Erythema [Recovering/Resolving]
  - Erythema [Recovering/Resolving]
  - Sopor [Recovering/Resolving]
  - Off label use [Recovering/Resolving]
